FAERS Safety Report 4864857-2 (Version None)
Quarter: 2005Q4

REPORT INFORMATION
  Report Type: 
  Country: None (occurrence: None)
  Receive Date: 20051201
  Receipt Date: 20050720
  Transmission Date: 20060501
  Serious: No
  Sender: FDA-Public Use
  Company Number: 2005PV000481

PATIENT
  Age: 61 Year
  Sex: Female
  Weight: 110.2241 kg

DRUGS (11)
  1. BYETTA [Suspect]
     Indication: DIABETES MELLITUS NON-INSULIN-DEPENDENT
     Dosage: 5 MCG; BID; SC
     Route: 058
     Dates: start: 20050719
  2. AMARYL [Concomitant]
  3. SULINDAC [Concomitant]
  4. PRAVACHOL [Concomitant]
  5. OMEPRAZOLE [Concomitant]
  6. TORSEMIDE [Concomitant]
  7. LANTUS [Concomitant]
  8. HUMULIN 70/30 [Concomitant]
  9. LOTREL [Concomitant]
  10. BENAZEPRIL HCL [Concomitant]
  11. HYDROCHLOROTHIAZIDE [Concomitant]

REACTIONS (2)
  - BLOOD GLUCOSE DECREASED [None]
  - FEELING ABNORMAL [None]
